FAERS Safety Report 19215592 (Version 1)
Quarter: 2021Q2

REPORT INFORMATION
  Report Type: Spontaneous
  Country: JP (occurrence: JP)
  Receive Date: 20210504
  Receipt Date: 20210504
  Transmission Date: 20210717
  Serious: Yes (Other)
  Sender: FDA-Public Use
  Company Number: JP-SUN PHARMACEUTICAL INDUSTRIES LTD-2021RR-293654

PATIENT
  Age: 62 Year
  Sex: Male

DRUGS (4)
  1. CARBOPLATIN. [Suspect]
     Active Substance: CARBOPLATIN
     Indication: ADENOCARCINOMA
     Dosage: AUC=6.0, EVERY 3 WEEKS, 4 CYCLES
     Route: 065
  2. PEMETREXED. [Suspect]
     Active Substance: PEMETREXED
     Indication: ADENOCARCINOMA
     Dosage: 500 MILLIGRAM/SQ. METER (EVERY 3 WEEKES)
     Route: 065
  3. CARBOPLATIN. [Suspect]
     Active Substance: CARBOPLATIN
     Indication: METASTASES TO LUNG
  4. PEMETREXED. [Suspect]
     Active Substance: PEMETREXED
     Indication: METASTASES TO LUNG

REACTIONS (2)
  - Pneumonitis [Unknown]
  - Therapy partial responder [Unknown]
